FAERS Safety Report 5786786-2 (Version None)
Quarter: 2008Q2

REPORT INFORMATION
  Report Type: 
  Country: None (occurrence: None)
  Receive Date: 20080624
  Receipt Date: 20080613
  Transmission Date: 20081010
  Serious: Yes (Life-Threatening, Hospitalization)
  Sender: FDA-Public Use
  Company Number: GB-AMGEN-US282576

PATIENT
  Sex: Female
  Weight: 90.3 kg

DRUGS (14)
  1. ENBREL [Suspect]
     Indication: DRUG USE FOR UNKNOWN INDICATION
     Route: 058
     Dates: start: 20071213, end: 20080511
  2. METHOTREXATE [Suspect]
     Indication: RHEUMATOID ARTHRITIS
     Route: 058
  3. SULFASALAZINE [Suspect]
     Indication: RHEUMATOID ARTHRITIS
     Route: 048
  4. ENALAPRIL MALEATE [Concomitant]
     Indication: BLOOD PRESSURE INCREASED
     Route: 048
  5. ARTHROTEC [Concomitant]
     Indication: RHEUMATOID ARTHRITIS
     Route: 048
  6. OMEPRAZOLE [Concomitant]
     Route: 048
  7. DIAZEPAM [Concomitant]
     Indication: SLEEP DISORDER
     Route: 048
  8. QUININE [Concomitant]
     Indication: MUSCLE SPASMS
     Route: 048
  9. FOLIC ACID [Concomitant]
     Route: 048
  10. ALENDRONATE SODIUM [Concomitant]
     Route: 048
  11. ASPIRIN [Concomitant]
     Indication: BLOOD PRESSURE INCREASED
     Route: 048
  12. BENDROFLUAZIDE [Concomitant]
     Route: 048
  13. CALCIUM WITH VITAMIN D [Concomitant]
     Dosage: UNKNOWN
  14. PREDNISOLONE [Concomitant]
     Indication: RHEUMATOID ARTHRITIS
     Route: 048

REACTIONS (2)
  - PULMONARY FIBROSIS [None]
  - SEPSIS [None]
